FAERS Safety Report 9245979 (Version 7)
Quarter: 2016Q2

REPORT INFORMATION
  Report Type: Spontaneous
  Country: US (occurrence: US)
  Receive Date: 20130422
  Receipt Date: 20160518
  Transmission Date: 20160815
  Serious: Yes (Hospitalization, Other)
  Sender: FDA-Public Use
  Company Number: US-PFIZER INC-2013125384

PATIENT
  Age: 71 Year
  Sex: Female
  Weight: 70.75 kg

DRUGS (9)
  1. PROLIA [Suspect]
     Active Substance: DENOSUMAB
     Indication: BONE DISORDER
     Dosage: 2 SHOTS PER YEAR
     Dates: start: 2011, end: 2013
  2. METOPROLOL TARTRATE. [Concomitant]
     Active Substance: METOPROLOL TARTRATE
     Indication: CARDIAC DISORDER
     Dosage: HALF OF 50 MG IN THE MORNING AND 50 MG AT NIGHT
     Dates: start: 2009
  3. ZOLPIDEM [Concomitant]
     Active Substance: ZOLPIDEM\ZOLPIDEM TARTRATE
     Dosage: UNK, AS NEEDED
  4. TYLENOL [Concomitant]
     Active Substance: ACETAMINOPHEN
     Dosage: UNK, AS NEEDED
  5. LYRICA [Suspect]
     Active Substance: PREGABALIN
     Indication: BACK PAIN
     Dosage: 125 MG, 2X/DAY
     Dates: start: 2010
  6. CLONAZEPAM. [Concomitant]
     Active Substance: CLONAZEPAM
     Dosage: UNK, AS NEEDED
  7. LYRICA [Suspect]
     Active Substance: PREGABALIN
     Indication: SPINAL COMPRESSION FRACTURE
     Dosage: 25 MG, 2X/DAY
     Route: 048
     Dates: start: 2010
  8. PROLIA [Suspect]
     Active Substance: DENOSUMAB
     Indication: OSTEOPOROSIS
  9. SIMVASTATIN. [Concomitant]
     Active Substance: SIMVASTATIN
     Indication: BLOOD CHOLESTEROL ABNORMAL
     Dosage: 40 MG, DAILY
     Dates: start: 2009

REACTIONS (11)
  - Tooth loss [Recovered/Resolved]
  - Productive cough [Not Recovered/Not Resolved]
  - Breast cancer female [Not Recovered/Not Resolved]
  - Tooth disorder [Recovered/Resolved]
  - Malaise [Recovered/Resolved]
  - Oropharyngeal pain [Unknown]
  - Drug dispensing error [Recovered/Resolved]
  - Respiratory tract congestion [Not Recovered/Not Resolved]
  - Body height decreased [Not Recovered/Not Resolved]
  - Cough [Not Recovered/Not Resolved]
  - Jaw disorder [Recovered/Resolved]

NARRATIVE: CASE EVENT DATE: 201107
